FAERS Safety Report 6965011-0 (Version None)
Quarter: 2010Q3

REPORT INFORMATION
  Report Type: 
  Country: None (occurrence: None)
  Receive Date: 20100903
  Receipt Date: 20100824
  Transmission Date: 20110219
  Serious: Yes (Other)
  Sender: FDA-Public Use
  Company Number: US-SANOFI-AVENTIS-2010SA041863

PATIENT
  Age: 65 Year
  Sex: Male
  Weight: 75.9 kg

DRUGS (20)
  1. MULTAQ [Suspect]
     Route: 048
     Dates: start: 20100517, end: 20100628
  2. SYNTHROID [Concomitant]
     Route: 048
  3. POTASSIUM CHLORIDE [Concomitant]
     Route: 048
  4. NITROGLYCERIN [Concomitant]
     Indication: CHEST PAIN
     Route: 060
  5. COUMADIN [Concomitant]
     Route: 048
  6. METOPROLOL TARTRATE [Concomitant]
     Indication: HEART RATE
     Dosage: TAKE ONE TABLET EVERY FOUR HOURS FOR HEART RATE OVER 110
     Route: 048
  7. TADALAFIL [Concomitant]
     Route: 048
  8. MYFORTIC [Concomitant]
     Route: 048
  9. LACTULOSE [Concomitant]
     Dosage: 10G/15ML, INSERT 30 ML (200G)
     Route: 054
  10. VITAMIN D [Concomitant]
     Dosage: DOSE:2000 UNIT(S)
  11. HYDROCODONE BITARTRATE + ACETAMINOPHEN [Concomitant]
     Indication: PAIN
     Dosage: 5MG/500MG TAKE ONE TABLET EVERY 4-6 HOURS AS NEEDED FOR PAIN
     Route: 048
  12. FISH OIL [Concomitant]
     Route: 048
  13. ALLOPURINOL [Concomitant]
     Dosage: TAKE 0.5 BY ORAL ROUTE DAILY
     Route: 048
  14. BUMETANIDE [Concomitant]
     Dosage: TAKE MONDAY, WEDNESDAY, FRIDAY
  15. METOLAZONE [Concomitant]
     Dosage: TAKE MONDAY, WEDNESDAY, FRIDAY
  16. PROGRAF [Concomitant]
  17. PREDNISONE [Concomitant]
     Route: 048
  18. OMEPRAZOLE [Concomitant]
  19. TYLENOL-500 [Concomitant]
  20. PROCRIT [Concomitant]

REACTIONS (3)
  - BLOOD CREATININE INCREASED [None]
  - GAMMA-GLUTAMYLTRANSFERASE INCREASED [None]
  - GLOMERULAR FILTRATION RATE DECREASED [None]
